FAERS Safety Report 5618916-7 (Version None)
Quarter: 2008Q1

REPORT INFORMATION
  Report Type: 
  Country: None (occurrence: None)
  Receive Date: 20080207
  Receipt Date: 20080204
  Transmission Date: 20080703
  Serious: Yes (Death, Other)
  Sender: FDA-Public Use
  Company Number: JP-SANOFI-SYNTHELABO-F01200701571

PATIENT
  Sex: Female
  Weight: 55 kg

DRUGS (6)
  1. CLOPIDOGREL [Suspect]
     Indication: ARTERIAL THROMBOSIS
     Dosage: 50 MG
     Route: 048
     Dates: start: 20061206, end: 20070420
  2. BUFFERIN [Concomitant]
     Indication: ANTIPLATELET THERAPY
     Dosage: 81 MG
     Route: 048
     Dates: start: 20061127, end: 20070420
  3. SYMMETREL [Concomitant]
     Dosage: 150 MG
     Route: 048
     Dates: start: 20061127, end: 20070420
  4. PREDNISOLONE [Concomitant]
     Dosage: 5 MG
     Route: 048
     Dates: start: 20061127, end: 20070114
  5. TAGAMET [Concomitant]
     Dosage: 400 MG
     Route: 048
     Dates: start: 20061127, end: 20070420
  6. SEPAMIT [Concomitant]
     Indication: HYPERTENSION
     Dosage: 20 MG
     Route: 048
     Dates: start: 20061204, end: 20070420

REACTIONS (5)
  - BLOOD CHOLESTEROL INCREASED [None]
  - BLOOD TRIGLYCERIDES INCREASED [None]
  - GASTROENTERITIS STAPHYLOCOCCAL [None]
  - JAUNDICE [None]
  - RESPIRATORY FAILURE [None]
